FAERS Safety Report 18536077 (Version 1)
Quarter: 2020Q4

REPORT INFORMATION
  Report Type: Report from Study
  Country: US (occurrence: US)
  Receive Date: 20201123
  Receipt Date: 20201123
  Transmission Date: 20210114
  Serious: Yes (Hospitalization)
  Sender: FDA-Public Use
  Company Number: US-PFIZER INC-2020458969

PATIENT
  Age: 59 Year
  Sex: Male

DRUGS (2)
  1. VERZENIO [Concomitant]
     Active Substance: ABEMACICLIB
     Dosage: UNK
  2. SUTENT [Suspect]
     Active Substance: SUNITINIB MALATE
     Indication: RENAL CANCER
     Dosage: 50 MG, CYCLIC (DAILY FOR 2 WEEKS ON, 1 WEEK OFF)
     Route: 048
     Dates: start: 20201101, end: 202011

REACTIONS (7)
  - Fatigue [Unknown]
  - Nausea [Recovering/Resolving]
  - Pyrexia [Unknown]
  - Blood creatinine increased [Unknown]
  - Product dose omission issue [Unknown]
  - Myalgia [Unknown]
  - Blood pressure fluctuation [Unknown]

NARRATIVE: CASE EVENT DATE: 202011
